FAERS Safety Report 7653981-7 (Version None)
Quarter: 2011Q3

REPORT INFORMATION
  Report Type: 
  Country: None (occurrence: None)
  Receive Date: 20110803
  Receipt Date: 20110720
  Transmission Date: 20111222
  Serious: Yes (Hospitalization)
  Sender: FDA-Public Use
  Company Number: PHHY2011JP60637

PATIENT

DRUGS (2)
  1. TEGRETOL [Suspect]
     Indication: EPILEPSY
     Dosage: 600 MG, UNK
     Route: 048
  2. TEGRETOL [Suspect]
     Dosage: 600 MG,300 MG
     Route: 048

REACTIONS (4)
  - TOXICITY TO VARIOUS AGENTS [None]
  - ANTICONVULSANT DRUG LEVEL INCREASED [None]
  - DRUG DEPENDENCE [None]
  - ACCIDENTAL OVERDOSE [None]
